FAERS Safety Report 8881194 (Version 2)
Quarter: 2013Q1

REPORT INFORMATION
  Report Type: Spontaneous
  Country: JP (occurrence: JP)
  Receive Date: 20121031
  Receipt Date: 20130208
  Transmission Date: 20140127
  Serious: Yes (Hospitalization)
  Sender: FDA-Public Use
  Company Number: PHHY2012JP097276

PATIENT
  Age: 79 Year
  Sex: Female

DRUGS (3)
  1. VOLTAREN SR [Suspect]
     Indication: PAIN IN EXTREMITY
     Dosage: 2 DF, DAILY
     Route: 048
     Dates: start: 20121003, end: 20121015
  2. GASLON [Concomitant]
     Dosage: 2 MG, UNK
     Route: 048
     Dates: start: 20121003, end: 20121015
  3. FEBURIC [Concomitant]
     Dosage: 20 MG,
     Route: 048
     Dates: start: 20121003

REACTIONS (7)
  - Ascites [Recovered/Resolved]
  - Renal impairment [Unknown]
  - Oliguria [Recovered/Resolved]
  - Generalised oedema [Recovered/Resolved]
  - Anuria [Unknown]
  - General physical health deterioration [Unknown]
  - Urine output decreased [Unknown]
